FAERS Safety Report 17663496 (Version 1)
Quarter: 2020Q2

REPORT INFORMATION
  Report Type: Report from Study
  Country: US (occurrence: US)
  Receive Date: 20200413
  Receipt Date: 20200413
  Transmission Date: 20200713
  Serious: Yes (Other)
  Sender: FDA-Public Use
  Company Number: US-AUROBINDO-AUR-APL-2020-017442

PATIENT
  Age: 14 Year
  Sex: Male

DRUGS (5)
  1. GEMCITABINE. [Suspect]
     Active Substance: GEMCITABINE
     Indication: NON-RENAL CELL CARCINOMA OF KIDNEY
     Dosage: 1000 MILLIGRAM/SQ. METER, 8 CYCLES
     Route: 065
  2. CISPLATIN. [Suspect]
     Active Substance: CISPLATIN
     Indication: NON-RENAL CELL CARCINOMA OF KIDNEY
     Dosage: 70 MILLIGRAM/SQ. METER, 8 CYCLES
     Route: 065
  3. PACLITAXEL. [Suspect]
     Active Substance: PACLITAXEL
     Indication: NON-RENAL CELL CARCINOMA OF KIDNEY
     Dosage: 80 MILLIGRAM/SQ. METER, 8 CYCLES
     Route: 065
  4. CARBOPLATIN. [Suspect]
     Active Substance: CARBOPLATIN
     Indication: NON-RENAL CELL CARCINOMA OF KIDNEY
     Dosage: 400 MILLIGRAM/SQ. METER, 8 CYCLES
     Route: 065
  5. BORTEZOMIB. [Suspect]
     Active Substance: BORTEZOMIB
     Indication: NON-RENAL CELL CARCINOMA OF KIDNEY
     Dosage: 1 MILLIGRAM/SQ. METER
     Route: 065

REACTIONS (5)
  - Blood creatinine increased [Unknown]
  - Transaminases increased [Unknown]
  - Bone marrow failure [Unknown]
  - Product use in unapproved indication [Unknown]
  - Neuropathy peripheral [Unknown]
